FAERS Safety Report 7635788-X (Version None)
Quarter: 2011Q3

REPORT INFORMATION
  Report Type: 
  Country: None (occurrence: None)
  Receive Date: 20110726
  Receipt Date: 20080806
  Transmission Date: 20111222
  Serious: Yes (Hospitalization, Other)
  Sender: FDA-Public Use
  Company Number: US-BAYER-201041647NA

PATIENT
  Age: 57 Year
  Sex: Male
  Weight: 98.866 kg

DRUGS (14)
  1. CAPTOPRIL [Concomitant]
     Dosage: 25 MG, BID
     Route: 048
     Dates: start: 20060804
  2. ACETYLSALICYLIC ACID SRT [Concomitant]
     Route: 048
  3. TRASYLOL [Suspect]
     Indication: MITRAL VALVE REPAIR
  4. CEFAZOLIN [Concomitant]
     Dosage: UNK
     Route: 042
     Dates: start: 20060808
  5. VERSED [Concomitant]
     Dosage: UNK
     Route: 042
     Dates: start: 20060808
  6. AMICAR [Concomitant]
     Dosage: 10 ML/HR
     Route: 042
     Dates: start: 20060808
  7. HEPARIN [Concomitant]
     Dosage: 45,000 UNITS
     Route: 042
     Dates: start: 20060808
  8. LEVOPHED [Concomitant]
     Dosage: UNK
     Route: 042
     Dates: start: 20060809
  9. AMICAR [Concomitant]
     Dosage: PRIME RATE OF 40ML
     Route: 042
     Dates: start: 20060808
  10. FENTANYL [Concomitant]
     Dosage: UNK
     Route: 042
     Dates: start: 20060808
  11. VANCOMYCIN [Concomitant]
     Dosage: UNK
     Route: 042
     Dates: start: 20060808
  12. DIURETICS [Concomitant]
     Indication: FLUID OVERLOAD
     Dosage: UNK
     Dates: start: 20060809
  13. TRASYLOL [Suspect]
     Indication: PRODUCT USED FOR UNKNOWN INDICATION
     Dosage: 1.4MG/ML X2 LOADING DOSE
     Route: 042
     Dates: start: 20060808
  14. PROTAMINE SULFATE [Concomitant]
     Dosage: 300 MG
     Route: 042
     Dates: start: 20060808

REACTIONS (10)
  - RENAL FAILURE CHRONIC [None]
  - STRESS [None]
  - FEAR [None]
  - RENAL IMPAIRMENT [None]
  - PAIN [None]
  - ANXIETY [None]
  - RENAL FAILURE [None]
  - UNEVALUABLE EVENT [None]
  - EMOTIONAL DISTRESS [None]
  - RENAL INJURY [None]
